FAERS Safety Report 11831903 (Version 3)
Quarter: 2016Q1

REPORT INFORMATION
  Report Type: Report from Study
  Country: CA (occurrence: CA)
  Receive Date: 20151214
  Receipt Date: 20160208
  Transmission Date: 20160525
  Serious: Yes (Hospitalization)
  Sender: FDA-Public Use
  Company Number: CA-JNJFOC-20151205701

PATIENT
  Age: 16 Year
  Sex: Female
  Weight: 46 kg

DRUGS (6)
  1. REMICADE [Suspect]
     Active Substance: INFLIXIMAB
     Indication: COLITIS ULCERATIVE
     Dosage: 10MG/KG
     Route: 042
     Dates: start: 20151207
  2. PREDNISONE. [Concomitant]
     Active Substance: PREDNISONE
     Dosage: TAPERING DOSE
     Route: 065
  3. REMICADE [Suspect]
     Active Substance: INFLIXIMAB
     Indication: COLITIS ULCERATIVE
     Dosage: LOADING DOSE, 5 MG/KG
     Route: 042
     Dates: start: 20150831
  4. BIPHENTIN [Concomitant]
     Active Substance: METHYLPHENIDATE
     Route: 065
  5. MESALAZINE [Concomitant]
     Active Substance: MESALAMINE
     Route: 048
  6. MESALAZINE [Concomitant]
     Active Substance: MESALAMINE
     Route: 065

REACTIONS (13)
  - Diarrhoea haemorrhagic [Recovered/Resolved]
  - Drug effect decreased [Unknown]
  - Dizziness [Recovered/Resolved]
  - Tachycardia [Recovered/Resolved]
  - Pulse abnormal [Recovered/Resolved]
  - Abasia [Recovered/Resolved]
  - Vomiting [Recovered/Resolved]
  - Dehydration [Recovered/Resolved]
  - Rectal haemorrhage [Recovered/Resolved]
  - Pallor [Recovered/Resolved]
  - Asthenia [Recovered/Resolved]
  - Blood pressure immeasurable [Recovered/Resolved]
  - Colitis ulcerative [Recovered/Resolved]

NARRATIVE: CASE EVENT DATE: 20151202
